FAERS Safety Report 4533075-X (Version None)
Quarter: 2004Q4

REPORT INFORMATION
  Report Type: 
  Country: None (occurrence: None)
  Receive Date: 20041220
  Receipt Date: 20041220
  Transmission Date: 20050328
  Serious: Yes (Death)
  Sender: FDA-Public Use
  Company Number: None

PATIENT
  Age: 33 Year
  Sex: Male
  Weight: 79.3795 kg

DRUGS (3)
  1. LORAZEPAM [Suspect]
     Indication: ANXIETY
     Dosage: 1 MG Q6 AND HS PARENTERAL
     Route: 051
     Dates: start: 20041123, end: 20041211
  2. LORAZEPAM [Suspect]
     Indication: SEDATION
     Dosage: 1 MG Q6 AND HS PARENTERAL
     Route: 051
     Dates: start: 20041123, end: 20041211
  3. VICODIN [Suspect]
     Indication: PAIN
     Dosage: 2 Q8H PARENTERAL
     Route: 051
     Dates: start: 20031211, end: 20041211

REACTIONS (1)
  - MEDICATION ERROR [None]
